FAERS Safety Report 18225587 (Version 2)
Quarter: 2020Q3

REPORT INFORMATION
  Report Type: Spontaneous
  Country: IN (occurrence: IN)
  Receive Date: 20200903
  Receipt Date: 20200930
  Transmission Date: 20201103
  Serious: Yes (Hospitalization, Other)
  Sender: FDA-Public Use
  Company Number: IN-SCIEGEN-2020SCILIT00260

PATIENT
  Age: 44 Year
  Sex: Male

DRUGS (4)
  1. STEROIDS [Interacting]
     Active Substance: UNSPECIFIED INGREDIENT
     Indication: RENAL FAILURE
     Dosage: UNKNOWN
     Route: 048
  2. METHYL PREDNISOLONE [Interacting]
     Active Substance: METHYLPREDNISOLONE
     Indication: RENAL FAILURE
     Dosage: UNKNOWN
     Route: 042
  3. CLOPIDOGREL [Suspect]
     Active Substance: CLOPIDOGREL BISULFATE
     Indication: ANGINA UNSTABLE
     Dosage: UNKNOWN
     Route: 065
  4. STEROIDS [Interacting]
     Active Substance: UNSPECIFIED INGREDIENT
     Indication: THROMBOTIC MICROANGIOPATHY

REACTIONS (3)
  - Haemolytic uraemic syndrome [Recovering/Resolving]
  - Renal failure [Recovering/Resolving]
  - Thrombotic microangiopathy [Recovering/Resolving]
